FAERS Safety Report 5473895-0 (Version None)
Quarter: 2007Q3

REPORT INFORMATION
  Report Type: 
  Country: None (occurrence: None)
  Receive Date: 20070831
  Receipt Date: 20070503
  Transmission Date: 20080115
  Serious: No
  Sender: FDA-Public Use
  Company Number: 240975

PATIENT
  Sex: Female

DRUGS (6)
  1. LUCENTIS [Suspect]
     Indication: MACULAR DEGENERATION
     Dosage: INTRAVITREAL;  INTRAVITREAL
     Dates: start: 20070301
  2. LUCENTIS [Suspect]
     Indication: MACULAR DEGENERATION
     Dosage: INTRAVITREAL;  INTRAVITREAL
     Dates: start: 20070425
  3. SYNTHROID [Concomitant]
  4. CARDIZEM CD [Concomitant]
  5. LESCOL XL [Concomitant]
  6. PRESERVISION NOS (VITAMINS AND MINERALS) [Concomitant]

REACTIONS (1)
  - VITREOUS FLOATERS [None]
